FAERS Safety Report 18355119 (Version 1)
Quarter: 2020Q4

REPORT INFORMATION
  Report Type: Spontaneous
  Country: US (occurrence: US)
  Receive Date: 20201006
  Receipt Date: 20201006
  Transmission Date: 20210114
  Serious: Yes (Hospitalization)
  Sender: FDA-Public Use
  Company Number: None

PATIENT
  Sex: Male

DRUGS (10)
  1. GABAPENTIN. [Concomitant]
     Active Substance: GABAPENTIN
  2. PROMACTA [Suspect]
     Active Substance: ELTROMBOPAG OLAMINE
     Indication: IMMUNE THROMBOCYTOPENIA
     Dosage: ?          OTHER DOSE:1 TAB;?
     Route: 048
     Dates: start: 20170806
  3. DEXAMETHASON [Concomitant]
     Active Substance: DEXAMETHASONE
  4. METOPROL SUC [Concomitant]
  5. FUROSEMIDE. [Concomitant]
     Active Substance: FUROSEMIDE
  6. PREDNISONE. [Concomitant]
     Active Substance: PREDNISONE
  7. ONDANSETRON [Concomitant]
     Active Substance: ONDANSETRON
  8. XIFAXAN [Concomitant]
     Active Substance: RIFAXIMIN
  9. CLINDAMYCIN. [Concomitant]
     Active Substance: CLINDAMYCIN
  10. SPIRONOLACT [Concomitant]
     Active Substance: SPIRONOLACTONE

REACTIONS (1)
  - Hospitalisation [None]
